FAERS Safety Report 22184756 (Version 1)
Quarter: 2023Q2

REPORT INFORMATION
  Report Type: Spontaneous
  Country: US (occurrence: US)
  Receive Date: 20230407
  Receipt Date: 20230407
  Transmission Date: 20230722
  Serious: No
  Sender: FDA-Public Use
  Company Number: US-Melinta Therapeutics, LLC-US-MLNT-23-00052

PATIENT
  Sex: Female

DRUGS (2)
  1. KIMYRSA [Suspect]
     Active Substance: ORITAVANCIN DIPHOSPHATE
     Indication: Cellulitis
     Dosage: NOT PROVIDED.
     Route: 041
     Dates: start: 20221215, end: 20221215
  2. KIMYRSA [Suspect]
     Active Substance: ORITAVANCIN DIPHOSPHATE
     Dosage: NOT PROVIDED.
     Route: 041
     Dates: start: 202212, end: 202212

REACTIONS (6)
  - Injection site pain [Not Recovered/Not Resolved]
  - Infusion site swelling [Recovering/Resolving]
  - Injection site mass [Recovering/Resolving]
  - Infusion site extravasation [Unknown]
  - Contusion [Recovered/Resolved]
  - Multiple use of single-use product [Unknown]

NARRATIVE: CASE EVENT DATE: 20221201
